FAERS Safety Report 8066406-7 (Version None)
Quarter: 2012Q1

REPORT INFORMATION
  Report Type: 
  Country: None (occurrence: None)
  Receive Date: 20120124
  Receipt Date: 20120124
  Transmission Date: 20120608
  Serious: Yes (Hospitalization)
  Sender: FDA-Public Use
  Company Number: None

PATIENT
  Age: 66 Year
  Weight: 127 kg

DRUGS (1)
  1. BIOFREEZE GEL [Suspect]
     Indication: PAIN
     Dates: start: 20120109, end: 20120111

REACTIONS (2)
  - CELLULITIS [None]
  - BLISTER [None]
